FAERS Safety Report 21388330 (Version 1)
Quarter: 2022Q3

REPORT INFORMATION
  Report Type: Spontaneous
  Country: US (occurrence: US)
  Receive Date: 20220928
  Receipt Date: 20220928
  Transmission Date: 20221027
  Serious: Yes (Other)
  Sender: FDA-Public Use
  Company Number: US-BEIGENE USA INC-BGN-2022-009457

PATIENT

DRUGS (1)
  1. BRUKINSA [Suspect]
     Active Substance: ZANUBRUTINIB
     Indication: Lymphoma
     Dosage: UNK

REACTIONS (3)
  - Syncope [Unknown]
  - Sleep disorder [Unknown]
  - Palpitations [Unknown]
